FAERS Safety Report 9866258 (Version 1)
Quarter: 2014Q1

REPORT INFORMATION
  Report Type: Spontaneous
  Country: US (occurrence: US)
  Receive Date: 20140203
  Receipt Date: 20140203
  Transmission Date: 20141002
  Serious: No
  Sender: FDA-Public Use
  Company Number: US-ALLERGAN-1318069US

PATIENT
  Age: 72 Year
  Sex: Female

DRUGS (5)
  1. GENTEAL                            /00445101/ [Concomitant]
     Indication: PRODUCT USED FOR UNKNOWN INDICATION
     Dosage: UNK
  2. SYSTANE [Concomitant]
     Indication: PRODUCT USED FOR UNKNOWN INDICATION
     Dosage: 2 GTT, BID
     Route: 047
  3. SOOTHE                             /00256502/ [Concomitant]
     Indication: PRODUCT USED FOR UNKNOWN INDICATION
     Dosage: UNK
  4. RESTASIS [Suspect]
     Indication: DRY EYE
     Dosage: 2 GTT, BID
     Route: 047
  5. METHOTREXATE [Concomitant]
     Indication: RHEUMATOID ARTHRITIS
     Dosage: 0.5 MG, UNK
     Route: 048

REACTIONS (1)
  - Instillation site pain [Not Recovered/Not Resolved]
